FAERS Safety Report 4742382-7 (Version None)
Quarter: 2005Q3

REPORT INFORMATION
  Report Type: 
  Country: None (occurrence: None)
  Receive Date: 20050808
  Receipt Date: 20050728
  Transmission Date: 20060218
  Serious: Yes (Death)
  Sender: FDA-Public Use
  Company Number: B0388926A

PATIENT
  Age: 52 Year
  Sex: Male

DRUGS (1)
  1. AVANDIA [Suspect]
     Indication: DIABETES MELLITUS NON-INSULIN-DEPENDENT

REACTIONS (15)
  - ASCITES [None]
  - BLOOD IRON DECREASED [None]
  - CHOLELITHIASIS [None]
  - GALLBLADDER DISORDER [None]
  - HEPATIC NECROSIS [None]
  - HEPATITIS CHOLESTATIC [None]
  - HEPATOCELLULAR DAMAGE [None]
  - HEPATOMEGALY [None]
  - HYPERAEMIA [None]
  - IRON BINDING CAPACITY TOTAL DECREASED [None]
  - KLEBSIELLA BACTERAEMIA [None]
  - PANCREATITIS HAEMORRHAGIC [None]
  - PORTAL HYPERTENSIVE GASTROPATHY [None]
  - SERUM FERRITIN INCREASED [None]
  - VARICES OESOPHAGEAL [None]
